FAERS Safety Report 11248221 (Version 8)
Quarter: 2016Q4

REPORT INFORMATION
  Report Type: Report from Study
  Country: JP (occurrence: JP)
  Receive Date: 20150708
  Receipt Date: 20161026
  Transmission Date: 20170206
  Serious: Yes (Death, Hospitalization)
  Sender: FDA-Public Use
  Company Number: JP-EISAI MEDICAL RESEARCH-EC-2015-008242

PATIENT
  Age: 78 Year
  Sex: Female
  Weight: 38 kg

DRUGS (14)
  1. LENVIMA [Suspect]
     Active Substance: LENVATINIB
     Route: 048
     Dates: start: 20160510, end: 20160523
  2. THYRADIN [Concomitant]
     Active Substance: LEVOTHYROXINE
  3. SODIUM PICOSULFATE HYDRATE [Concomitant]
  4. LENVIMA [Suspect]
     Active Substance: LENVATINIB
     Route: 048
     Dates: start: 20150630, end: 20150701
  5. MAGLAX [Concomitant]
     Active Substance: MAGNESIUM OXIDE
  6. BESOFTEN [Concomitant]
     Active Substance: SODIUM ALGINATE
  7. MS CONTIN [Concomitant]
     Active Substance: MORPHINE SULFATE
  8. CALCIUM LACTATE AND PREPARATIONS [Concomitant]
  9. REBAMIPIDE [Concomitant]
     Active Substance: REBAMIPIDE
  10. LEVOTHYROXINE SODIUM HYDRATE [Concomitant]
     Active Substance: LEVOTHYROXINE SODIUM
  11. LENVIMA [Suspect]
     Active Substance: LENVATINIB
     Indication: ANAPLASTIC THYROID CANCER
     Route: 048
     Dates: start: 20150601, end: 20150629
  12. LENVIMA [Suspect]
     Active Substance: LENVATINIB
     Route: 048
     Dates: start: 20150928, end: 20160509
  13. LENVIMA [Suspect]
     Active Substance: LENVATINIB
     Route: 048
     Dates: start: 20160524, end: 20160606
  14. BROTIZOLAM [Concomitant]
     Active Substance: BROTIZOLAM

REACTIONS (5)
  - Fistula [Not Recovered/Not Resolved]
  - Vomiting [Recovered/Resolved]
  - Pancytopenia [Recovered/Resolved]
  - Amyloidosis [Recovering/Resolving]
  - Malignant neoplasm progression [Fatal]

NARRATIVE: CASE EVENT DATE: 20150629
